FAERS Safety Report 9785874 (Version 3)
Quarter: 2014Q1

REPORT INFORMATION
  Report Type: Report from Study
  Country: DZ (occurrence: DZ)
  Receive Date: 20131227
  Receipt Date: 20140108
  Transmission Date: 20141002
  Serious: Yes (Death)
  Sender: FDA-Public Use
  Company Number: DZ-SA-2013SA134795

PATIENT
  Age: 57 Year
  Sex: Female
  Weight: 43 kg

DRUGS (5)
  1. DOCETAXEL [Suspect]
     Indication: BREAST CANCER
     Route: 042
     Dates: start: 200908, end: 20090825
  2. ONDANSETRON [Concomitant]
     Indication: VOMITING
     Route: 042
     Dates: start: 20000825, end: 20000825
  3. RANITIDINE [Concomitant]
     Indication: GASTRIC ULCER
     Route: 042
     Dates: start: 20000825, end: 20000825
  4. METHYLPREDNISOLONE [Concomitant]
     Indication: VOMITING
     Route: 042
     Dates: start: 20000825, end: 20000825
  5. CORTICOSTEROIDS [Concomitant]
     Route: 048
     Dates: start: 20000824, end: 20000826

REACTIONS (5)
  - Jaundice [Fatal]
  - Disease progression [Fatal]
  - Arthralgia [Recovered/Resolved]
  - Febrile neutropenia [Recovered/Resolved]
  - Mucosal inflammation [Recovered/Resolved]
